FAERS Safety Report 23299517 (Version 2)
Quarter: 2024Q1

REPORT INFORMATION
  Report Type: Spontaneous
  Country: US (occurrence: US)
  Receive Date: 20231215
  Receipt Date: 20240114
  Transmission Date: 20240410
  Serious: No
  Sender: FDA-Public Use
  Company Number: US-JNJFOC-20231217992

PATIENT
  Sex: Female

DRUGS (1)
  1. TREMFYA [Suspect]
     Active Substance: GUSELKUMAB
     Indication: Psoriatic arthropathy
     Route: 065

REACTIONS (6)
  - Therapeutic product effect decreased [Unknown]
  - Foreign body [Unknown]
  - Contusion [Unknown]
  - Device issue [Unknown]
  - Product design issue [Unknown]
  - Off label use [Unknown]
